FAERS Safety Report 6553550-6 (Version None)
Quarter: 2010Q1

REPORT INFORMATION
  Report Type: 
  Country: None (occurrence: None)
  Receive Date: 20100127
  Receipt Date: 20100121
  Transmission Date: 20100710
  Serious: Yes (Other)
  Sender: FDA-Public Use
  Company Number: US-ROCHE-680930

PATIENT
  Sex: Male

DRUGS (3)
  1. PEG-INTERFERON A-2A (RO 25-8310) [Suspect]
     Indication: HEPATITIS C
     Dosage: FORM: PFS
     Route: 065
     Dates: start: 20090115, end: 20091228
  2. RIBAVIRIN [Suspect]
     Indication: HEPATITIS C
     Dosage: DIVIDED DOSES
     Route: 065
     Dates: start: 20090115, end: 20091228
  3. INSULIN [Concomitant]
     Dosage: DRUG REPORTED: INSULIN MANTIS

REACTIONS (2)
  - MUSCLE RUPTURE [None]
  - PAIN [None]
